FAERS Safety Report 8602906-6 (Version None)
Quarter: 2012Q3

REPORT INFORMATION
  Report Type: 
  Country: None (occurrence: None)
  Receive Date: 20120817
  Receipt Date: 20120807
  Transmission Date: 20120928
  Serious: Yes (Hospitalization)
  Sender: FDA-Public Use
  Company Number: FR-GLAXOSMITHKLINE-B0820930A

PATIENT
  Sex: Male

DRUGS (2)
  1. LAMICTAL [Suspect]
     Indication: EPILEPSY
     Route: 048
     Dates: start: 20120516, end: 20120606
  2. PHENOBARBITAL TAB [Concomitant]
     Route: 065

REACTIONS (8)
  - NAUSEA [None]
  - MALAISE [None]
  - HEADACHE [None]
  - HYPERTHERMIA [None]
  - HYPERHIDROSIS [None]
  - ALLERGIC HEPATITIS [None]
  - FALL [None]
  - RASH [None]
